FAERS Safety Report 9711227 (Version 1)
Quarter: 2013Q4

REPORT INFORMATION
  Report Type: Spontaneous
  Country: US (occurrence: None)
  Receive Date: 20131125
  Receipt Date: 20131125
  Transmission Date: 20140711
  Serious: Yes (Life-Threatening, Hospitalization, Other)
  Sender: FDA-Public Use
  Company Number: None

PATIENT
  Age: 66 Year
  Sex: Female
  Weight: 77.57 kg

DRUGS (1)
  1. VIMPAT [Suspect]
     Indication: COMPLEX PARTIAL SEIZURES
     Dosage: 100 IN AM + 150 IN PM, TWICE DAILY, TAKEN BY MOUTH
     Dates: start: 20120208, end: 20131122

REACTIONS (29)
  - Dyspepsia [None]
  - Decreased appetite [None]
  - Eructation [None]
  - Gait disturbance [None]
  - Unevaluable event [None]
  - Muscular weakness [None]
  - Convulsion [None]
  - Speech disorder [None]
  - Disturbance in attention [None]
  - Dyspnoea [None]
  - Ventricular extrasystoles [None]
  - Tachycardia [None]
  - Heart rate increased [None]
  - Constipation [None]
  - Crying [None]
  - Hyperacusis [None]
  - Photosensitivity reaction [None]
  - Weight decreased [None]
  - Increased appetite [None]
  - Palpitations [None]
  - Dizziness [None]
  - Presyncope [None]
  - Blood potassium decreased [None]
  - Somnolence [None]
  - Dyspepsia [None]
  - Alopecia [None]
  - Haemoglobin decreased [None]
  - Haematocrit decreased [None]
  - Wrong drug administered [None]
